FAERS Safety Report 6690189-6 (Version None)
Quarter: 2010Q2

REPORT INFORMATION
  Report Type: 
  Country: None (occurrence: None)
  Receive Date: 20100421
  Receipt Date: 20100412
  Transmission Date: 20101027
  Serious: Yes (Death, Other)
  Sender: FDA-Public Use
  Company Number: US-AMGEN-US349566

PATIENT
  Sex: Male
  Weight: 88.1 kg

DRUGS (20)
  1. NPLATE [Suspect]
     Indication: IDIOPATHIC THROMBOCYTOPENIC PURPURA
     Route: 058
     Dates: start: 20081105, end: 20091014
  2. TINCTURE OF OPIUM [Concomitant]
     Dates: start: 20090606
  3. DANAZOL [Concomitant]
     Route: 048
     Dates: start: 20071011
  4. FLEXERIL [Concomitant]
     Route: 048
     Dates: start: 20070426
  5. ATROPINE W/DIPHENOXYLATE [Concomitant]
     Route: 048
     Dates: start: 20060323
  6. VALTREX [Concomitant]
     Route: 048
     Dates: start: 20071011
  7. DEPO-TESTOSTERONE [Concomitant]
     Dates: start: 20030201
  8. KLONOPIN [Concomitant]
     Route: 048
     Dates: start: 19990101
  9. NEURONTIN [Concomitant]
     Route: 048
     Dates: start: 19980101
  10. HYTRIN [Concomitant]
     Route: 048
     Dates: start: 19960101
  11. GLUCOSAMINE [Concomitant]
     Route: 048
  12. VITAMIN C [Concomitant]
     Route: 048
  13. FERRO-SEQUELS [Concomitant]
     Route: 048
  14. RITUXIMAB [Concomitant]
     Dates: start: 20050308
  15. ACETAMINOPHEN [Concomitant]
     Route: 048
     Dates: start: 20040209
  16. CIMETIDINE [Concomitant]
     Dates: start: 20061129
  17. DIPHENHYDRAMINE HYDROCHLORIDE [Concomitant]
     Dates: start: 20061129
  18. PALONOSETRON HYDROCHLORIDE [Concomitant]
     Dates: start: 20051123
  19. VIAGRA [Concomitant]
     Route: 048
     Dates: start: 20050307
  20. AMOXICILLIN [Concomitant]
     Route: 048

REACTIONS (6)
  - ARTHRALGIA [None]
  - COLON CANCER [None]
  - COLON CANCER METASTATIC [None]
  - HEPATIC FAILURE [None]
  - MYALGIA [None]
  - PYREXIA [None]
